FAERS Safety Report 25295400 (Version 3)
Quarter: 2025Q4

REPORT INFORMATION
  Report Type: Spontaneous
  Country: US (occurrence: US)
  Receive Date: 20250511
  Receipt Date: 20251022
  Transmission Date: 20260117
  Serious: No
  Sender: SANOFI AVENTIS
  Company Number: US-SA-2025SA129822

PATIENT
  Age: 67 Year
  Sex: Female

DRUGS (2)
  1. DUPIXENT [Suspect]
     Active Substance: DUPILUMAB
     Indication: Chronic obstructive pulmonary disease
     Dosage: 600 MG, 1X
     Route: 058
     Dates: start: 202503, end: 202503
  2. DUPIXENT [Suspect]
     Active Substance: DUPILUMAB
     Dosage: 300 MG, QOW
     Route: 058
     Dates: start: 2025

REACTIONS (9)
  - Infected bite [Unknown]
  - Erythema [Unknown]
  - Skin swelling [Unknown]
  - Upper respiratory tract infection [Unknown]
  - Productive cough [Unknown]
  - Nasal congestion [Unknown]
  - Constipation [Unknown]
  - Respiratory tract congestion [Recovering/Resolving]
  - Extra dose administered [Unknown]

NARRATIVE: CASE EVENT DATE: 20250101
